FAERS Safety Report 8256841-6 (Version None)
Quarter: 2012Q2

REPORT INFORMATION
  Report Type: 
  Country: None (occurrence: None)
  Receive Date: 20120403
  Receipt Date: 20120323
  Transmission Date: 20120825
  Serious: Yes (Hospitalization, Other)
  Sender: FDA-Public Use
  Company Number: JP-BRISTOL-MYERS SQUIBB COMPANY-16491235

PATIENT

DRUGS (3)
  1. TS-1 [Concomitant]
     Indication: COLORECTAL CANCER
     Dates: start: 20110910
  2. ERBITUX [Suspect]
     Indication: COLORECTAL CANCER
     Route: 042
     Dates: start: 20110910
  3. TOPOTECAN [Concomitant]
     Indication: COLORECTAL CANCER
     Route: 042
     Dates: start: 20110910

REACTIONS (1)
  - CEREBRAL HAEMORRHAGE [None]
